FAERS Safety Report 7167410-3 (Version None)
Quarter: 2010Q4

REPORT INFORMATION
  Report Type: 
  Country: None (occurrence: None)
  Receive Date: 20101216
  Receipt Date: 20091116
  Transmission Date: 20110411
  Serious: No
  Sender: FDA-Public Use
  Company Number: A0824174A

PATIENT
  Age: 75 Year
  Sex: Female

DRUGS (1)
  1. COMMIT [Suspect]

REACTIONS (4)
  - ABDOMINAL DISCOMFORT [None]
  - ABDOMINAL PAIN UPPER [None]
  - GASTRIC DISORDER [None]
  - INTENTIONAL DRUG MISUSE [None]
